FAERS Safety Report 4717775-4 (Version None)
Quarter: 2005Q3

REPORT INFORMATION
  Report Type: 
  Country: None (occurrence: None)
  Receive Date: 20050715
  Receipt Date: 20050131
  Transmission Date: 20060218
  Serious: Yes (Death)
  Sender: FDA-Public Use
  Company Number: 2005-00092

PATIENT
  Age: 73 Year
  Sex: Male
  Weight: 62.6 kg

DRUGS (15)
  1. INTEGRILIN [Suspect]
     Indication: CORONARY ANGIOPLASTY
     Dosage: 5.60 ML, IV BOLUS
     Route: 040
     Dates: start: 20050114, end: 20050114
  2. INTEGRILIN [Suspect]
     Indication: CORONARY ANGIOPLASTY
     Dosage: 5.60 ML, IV BOLUS
     Route: 040
     Dates: start: 20050114
  3. . [Concomitant]
  4. HEPARIN [Concomitant]
  5. CORGARD [Concomitant]
  6. NIACIN [Concomitant]
  7. ZOCOR [Concomitant]
  8. ASPIRIN [Concomitant]
  9. FOLIC ACID [Concomitant]
  10. RAMIPRIL [Concomitant]
  11. ^DASHON^ [Concomitant]
  12. ACTINAL (CYPROHEPTADINE HYDROCHLORIDE) [Concomitant]
  13. VITAMIN E (VEGETABLE OIL) [Concomitant]
  14. VITAMIN C (ASCORBIC ACID) [Concomitant]
  15. CALCIUM (CALCIUM) [Concomitant]

REACTIONS (1)
  - HAEMORRHAGE INTRACRANIAL [None]
